FAERS Safety Report 20141929 (Version 1)
Quarter: 2021Q4

REPORT INFORMATION
  Report Type: Spontaneous
  Country: US (occurrence: None)
  Receive Date: 20211202
  Receipt Date: 20211202
  Transmission Date: 20220303
  Serious: Yes (Hospitalization, Disabling, Other)
  Sender: FDA-Public Use
  Company Number: None

PATIENT
  Age: 52 Year
  Sex: Female
  Weight: 68.04 kg

DRUGS (2)
  1. REMICADE [Suspect]
     Active Substance: INFLIXIMAB
     Indication: Crohn^s disease
     Dosage: FREQUENCY : EVERY OTHER WEEK;?
     Dates: start: 20190829
  2. ENTYVIO [Suspect]
     Active Substance: VEDOLIZUMAB

REACTIONS (7)
  - Swollen tongue [None]
  - Contusion [None]
  - Haemorrhage [None]
  - Amnesia [None]
  - Dizziness [None]
  - Generalised tonic-clonic seizure [None]
  - Lymphadenopathy [None]

NARRATIVE: CASE EVENT DATE: 20190829
